FAERS Safety Report 5418212-7 (Version None)
Quarter: 2007Q3

REPORT INFORMATION
  Report Type: 
  Country: None (occurrence: None)
  Receive Date: 20070817
  Receipt Date: 20070807
  Transmission Date: 20080115
  Serious: Yes (Hospitalization)
  Sender: FDA-Public Use
  Company Number: US-ROCHE-501822

PATIENT
  Age: 72 Year
  Sex: Female
  Weight: 54.4 kg

DRUGS (1)
  1. XELODA [Suspect]
     Indication: BREAST CANCER
     Dosage: 1000 MG IN MORNING AND 1500 MG IN EVENING. THE THERAPY STOPPED AFTER 2 WEEKS
     Route: 048

REACTIONS (1)
  - DECUBITUS ULCER [None]
